FAERS Safety Report 10606847 (Version 2)
Quarter: 2014Q4

REPORT INFORMATION
  Report Type: Report from Study
  Country: US (occurrence: US)
  Receive Date: 20141125
  Receipt Date: 20141125
  Transmission Date: 20150529
  Serious: Yes (Other)
  Sender: FDA-Public Use
  Company Number: US-BAYER-2012-080695

PATIENT
  Age: 66 Year
  Sex: Female

DRUGS (2)
  1. SORAFENIB (RAF KINASE INHIBITOR) [Suspect]
     Active Substance: SORAFENIB
     Indication: RENAL CELL CARCINOMA
     Dosage: 400 MG, QD
     Dates: start: 20080423
  2. SORAFENIB (RAF KINASE INHIBITOR) [Suspect]
     Active Substance: SORAFENIB
     Indication: HEPATIC CANCER
     Dosage: 600 MG, QD
     Route: 048
     Dates: start: 20120417

REACTIONS (14)
  - Poor venous access [Not Recovered/Not Resolved]
  - Diarrhoea [Not Recovered/Not Resolved]
  - Palmoplantar keratoderma [None]
  - Skin disorder [None]
  - Adverse drug reaction [None]
  - Headache [None]
  - Fatigue [None]
  - Hypertension [None]
  - Pruritus [None]
  - Nausea [None]
  - Alopecia [Not Recovered/Not Resolved]
  - Diarrhoea [None]
  - Blister [None]
  - Pain in extremity [None]
